FAERS Safety Report 9193211 (Version 1)
Quarter: 2013Q1

REPORT INFORMATION
  Report Type: Spontaneous
  Country: US (occurrence: None)
  Receive Date: 20130325
  Receipt Date: 20130325
  Transmission Date: 20140127
  Serious: Yes (Hospitalization)
  Sender: FDA-Public Use
  Company Number: None

PATIENT
  Age: 56 Year
  Sex: Male
  Weight: 57.61 kg

DRUGS (3)
  1. BALSALAZIDE DISODIUM [Suspect]
     Indication: COLITIS ULCERATIVE
     Route: 048
     Dates: start: 20130220, end: 20130311
  2. CETIRIZINE HCL [Concomitant]
  3. LOSARTAN-HCTZ [Concomitant]

REACTIONS (1)
  - Pancreatitis [None]
